FAERS Safety Report 4304584-3 (Version None)
Quarter: 2004Q1

REPORT INFORMATION
  Report Type: 
  Country: None (occurrence: None)
  Receive Date: 20040225
  Receipt Date: 20040225
  Transmission Date: 20041129
  Serious: Yes (Hospitalization)
  Sender: FDA-Public Use
  Company Number: None

PATIENT
  Age: 64 Year
  Sex: Female
  Weight: 93.1 kg

DRUGS (7)
  1. LOTENSIN [Suspect]
     Indication: HYPERTENSION
     Dosage: 40 MG DAILY ORAL
     Route: 048
  2. GLYBURIDE [Concomitant]
  3. CIMETIDINE HCL [Concomitant]
  4. PREMARIN [Concomitant]
  5. AMLODIPINE [Concomitant]
  6. CEPHALEXIN [Concomitant]
  7. METFORMIN [Concomitant]

REACTIONS (1)
  - TONGUE OEDEMA [None]
